FAERS Safety Report 10220439 (Version 1)
Quarter: 2014Q2

REPORT INFORMATION
  Report Type: Report from Study
  Country: US (occurrence: US)
  Receive Date: 20140606
  Receipt Date: 20140606
  Transmission Date: 20141212
  Serious: Yes (Hospitalization)
  Sender: FDA-Public Use
  Company Number: US-BIOGENIDEC-2014BI051665

PATIENT
  Age: 50 Year
  Sex: Female

DRUGS (11)
  1. TECFIDERA [Suspect]
     Indication: MULTIPLE SCLEROSIS
     Route: 048
     Dates: start: 20130531
  2. BUPROFION XL [Concomitant]
     Dates: start: 20140130
  3. FLUOROMETHOLONE [Concomitant]
  4. IBUPROFEN [Concomitant]
     Dates: start: 20140227
  5. INOSITOL [Concomitant]
     Dates: start: 20130913
  6. MISOPROSTOL [Concomitant]
     Dates: start: 20140321
  7. NALTREXONE HCL [Concomitant]
     Dates: start: 20131209
  8. OMEPRAZOLE [Concomitant]
     Dates: start: 20140428
  9. PREDNISONE [Concomitant]
     Dates: start: 20140418
  10. TRAZODONE [Concomitant]
     Dates: start: 20140213
  11. HYDROCORTISONE [Concomitant]

REACTIONS (2)
  - Chest pain [Not Recovered/Not Resolved]
  - Multiple sclerosis relapse [Not Recovered/Not Resolved]
